FAERS Safety Report 8986344 (Version 1)
Quarter: 2012Q4

REPORT INFORMATION
  Report Type: Report from Study
  Country: US (occurrence: US)
  Receive Date: 20121226
  Receipt Date: 20121226
  Transmission Date: 20130627
  Serious: No
  Sender: FDA-Public Use
  Company Number: US-ROCHE-GNE261208

PATIENT
  Sex: Female

DRUGS (3)
  1. OMALIZUMAB [Suspect]
     Indication: INFLAMMATION
     Route: 065
     Dates: start: 2007
  2. OMALIZUMAB [Suspect]
     Route: 065
     Dates: start: 200803
  3. OMALIZUMAB [Suspect]
     Route: 065

REACTIONS (1)
  - Pharyngitis streptococcal [Unknown]
